FAERS Safety Report 15203433 (Version 1)
Quarter: 2018Q3

REPORT INFORMATION
  Report Type: Spontaneous
  Country: US (occurrence: US)
  Receive Date: 20180726
  Receipt Date: 20180726
  Transmission Date: 20181010
  Serious: Yes (Other)
  Sender: FDA-Public Use
  Company Number: US-CELGENEUS-USA-20180706352

PATIENT
  Sex: Female
  Weight: 78.09 kg

DRUGS (6)
  1. THALOMID [Suspect]
     Active Substance: THALIDOMIDE
     Dosage: 200 MILLIGRAM
     Route: 048
     Dates: start: 200507
  2. THALOMID [Suspect]
     Active Substance: THALIDOMIDE
     Dosage: 200MG?100MG
     Route: 048
     Dates: start: 200804
  3. THALOMID [Suspect]
     Active Substance: THALIDOMIDE
     Indication: PLASMA CELL MYELOMA RECURRENT
     Dosage: 50 MILLIGRAM
     Route: 048
     Dates: start: 200507
  4. THALOMID [Suspect]
     Active Substance: THALIDOMIDE
     Dosage: 200MG?150MG
     Route: 048
     Dates: start: 200609
  5. THALOMID [Suspect]
     Active Substance: THALIDOMIDE
     Dosage: 50MG?100MG
     Route: 048
     Dates: start: 200704
  6. THALOMID [Suspect]
     Active Substance: THALIDOMIDE
     Dosage: 50MG?100MG
     Route: 048
     Dates: start: 200604

REACTIONS (1)
  - Diabetes mellitus [Unknown]

NARRATIVE: CASE EVENT DATE: 2015
